FAERS Safety Report 21624721 (Version 1)
Quarter: 2022Q4

REPORT INFORMATION
  Report Type: Spontaneous
  Country: US (occurrence: US)
  Receive Date: 20221122
  Receipt Date: 20221122
  Transmission Date: 20230113
  Serious: Yes (Other)
  Sender: FDA-Public Use
  Company Number: US-BIOVITRUM-2022US13519

PATIENT
  Sex: Female
  Weight: 3 kg

DRUGS (11)
  1. SYNAGIS [Suspect]
     Active Substance: PALIVIZUMAB
     Indication: Premature baby
     Dates: start: 20221018
  2. PROPRANOLOL HYDROCHLORIDE [Concomitant]
     Active Substance: PROPRANOLOL HYDROCHLORIDE
     Dosage: 20MG/5ML SOLUTION
  3. SYNAGIS [Suspect]
     Active Substance: PALIVIZUMAB
     Indication: Fallot^s tetralogy
  4. SULFAMETHOXAZOLE\TRIMETHOPRIM [Concomitant]
     Active Substance: SULFAMETHOXAZOLE\TRIMETHOPRIM
  5. SYNAGIS [Suspect]
     Active Substance: PALIVIZUMAB
     Indication: Mosaicism
  6. SYNAGIS [Suspect]
     Active Substance: PALIVIZUMAB
     Indication: Atrial septal defect
  7. SYNAGIS [Suspect]
     Active Substance: PALIVIZUMAB
     Indication: Ectopic kidney
  8. SYNAGIS [Suspect]
     Active Substance: PALIVIZUMAB
     Indication: Persistent left superior vena cava
  9. SYNAGIS [Suspect]
     Active Substance: PALIVIZUMAB
     Indication: Pulmonary valve stenosis
  10. SYNAGIS [Suspect]
     Active Substance: PALIVIZUMAB
     Indication: Renal aplasia
  11. SYNAGIS [Suspect]
     Active Substance: PALIVIZUMAB
     Indication: Low birth weight baby

REACTIONS (2)
  - Fallot^s tetralogy [Unknown]
  - Atrial septal defect [Unknown]
